FAERS Safety Report 9371605 (Version 1)
Quarter: 2013Q2

REPORT INFORMATION
  Report Type: Spontaneous
  Country: US (occurrence: None)
  Receive Date: 20130626
  Receipt Date: 20130626
  Transmission Date: 20140414
  Serious: Yes (Hospitalization)
  Sender: FDA-Public Use
  Company Number: None

PATIENT
  Age: 64 Year
  Sex: Male
  Weight: 84.5 kg

DRUGS (2)
  1. CEFEPIME [Suspect]
     Indication: CELLULITIS
     Dosage: 1 GM EVERY DAY IV
     Route: 042
     Dates: start: 20130605, end: 20130605
  2. CEFEPIME [Suspect]
     Indication: GRAM STAIN NEGATIVE
     Dosage: 1 GM EVERY DAY IV
     Route: 042
     Dates: start: 20130605, end: 20130605

REACTIONS (1)
  - Rash [None]
